FAERS Safety Report 8911548 (Version 2)
Quarter: 2013Q1

REPORT INFORMATION
  Report Type: Spontaneous
  Country: US (occurrence: US)
  Receive Date: 20121116
  Receipt Date: 20130214
  Transmission Date: 20140127
  Serious: Yes (Other)
  Sender: FDA-Public Use
  Company Number: US-009507513-1211USA004351

PATIENT
  Sex: Female

DRUGS (2)
  1. JANUVIA [Suspect]
     Indication: DIABETES MELLITUS
     Dosage: UNK
     Route: 048
  2. IBUPROFEN [Concomitant]

REACTIONS (1)
  - Renal failure [Recovered/Resolved]
